FAERS Safety Report 18205725 (Version 1)
Quarter: 2020Q3

REPORT INFORMATION
  Report Type: Spontaneous
  Country: FR (occurrence: FR)
  Receive Date: 20200827
  Receipt Date: 20200827
  Transmission Date: 20201103
  Serious: Yes (Death)
  Sender: FDA-Public Use
  Company Number: FR-ALSI-202000329

PATIENT
  Age: 91 Year
  Sex: Male

DRUGS (1)
  1. OXYGEN. [Suspect]
     Active Substance: OXYGEN
     Indication: RESPIRATORY FAILURE
     Route: 055
     Dates: start: 20200227, end: 20200227

REACTIONS (2)
  - Device connection issue [Fatal]
  - Cardio-respiratory arrest [Fatal]
